FAERS Safety Report 21033560 (Version 1)
Quarter: 2022Q3

REPORT INFORMATION
  Report Type: Report from Study
  Country: EG (occurrence: EG)
  Receive Date: 20220701
  Receipt Date: 20220701
  Transmission Date: 20221026
  Serious: Yes (Other)
  Sender: FDA-Public Use
  Company Number: EG-NOVARTISPH-NVSC2022EG029742

PATIENT
  Age: 35 Year
  Sex: Female

DRUGS (5)
  1. PIQRAY [Suspect]
     Active Substance: ALPELISIB
     Indication: Breast cancer metastatic
     Dosage: 150 MG, BID (FOR TWO DAYS THEN ONE DAY OFF.)
     Route: 048
     Dates: start: 202108
  2. PIQRAY [Suspect]
     Active Substance: ALPELISIB
     Dosage: 300 MG, QD (TWO DAYS ON AND ONE DAY OFF)
     Route: 048
     Dates: start: 20211224
  3. PIQRAY [Suspect]
     Active Substance: ALPELISIB
     Dosage: 300 MG, QOD (ONE DAY ON AND ONE DAY OFF)
     Route: 048
     Dates: start: 20220415, end: 20220616
  4. PIQRAY [Suspect]
     Active Substance: ALPELISIB
     Dosage: 300 MG (2 DAYS ON AND ONE DAY OFF)
     Route: 048
     Dates: start: 20220616
  5. EFFERVESCENT [Concomitant]
     Indication: Product used for unknown indication
     Dosage: UNK
     Route: 065

REACTIONS (6)
  - Breast cancer [Recovering/Resolving]
  - Drug ineffective [Recovering/Resolving]
  - Hypotension [Recovering/Resolving]
  - Neuralgia [Recovering/Resolving]
  - Hypoaesthesia [Recovering/Resolving]
  - Fatigue [Recovering/Resolving]

NARRATIVE: CASE EVENT DATE: 20211101
